FAERS Safety Report 25523345 (Version 2)
Quarter: 2025Q3

REPORT INFORMATION
  Report Type: Report from Study
  Country: CN (occurrence: CN)
  Receive Date: 20250707
  Receipt Date: 20250710
  Transmission Date: 20251020
  Serious: Yes (Hospitalization, Other)
  Sender: SANDOZ
  Company Number: CN-SANDOZ-SDZ2025CN045665

PATIENT
  Sex: Female
  Weight: 56 kg

DRUGS (2)
  1. DENOSUMAB [Suspect]
     Active Substance: DENOSUMAB
     Indication: Osteoporosis
     Route: 058
     Dates: end: 20241225
  2. ZOLEDRONIC ACID [Suspect]
     Active Substance: ZOLEDRONIC ACID
     Indication: Osteoporosis
     Route: 041
     Dates: start: 20240413, end: 20240413

REACTIONS (26)
  - Bone density decreased [Recovering/Resolving]
  - Anxiety disorder [Recovered/Resolved]
  - Seizure [Recovered/Resolved]
  - Tachycardia [Recovering/Resolving]
  - Flatulence [Not Recovered/Not Resolved]
  - Faeces discoloured [Unknown]
  - Skin discolouration [Recovered/Resolved]
  - COVID-19 [Recovered/Resolved]
  - Swelling [Unknown]
  - Feeling abnormal [Unknown]
  - Immune system disorder [Unknown]
  - Cartilage injury [Unknown]
  - Crepitations [Not Recovered/Not Resolved]
  - Cold sweat [Recovered/Resolved]
  - Tooth disorder [Unknown]
  - Paraesthesia [Unknown]
  - Tremor [Unknown]
  - Hyperhidrosis [Unknown]
  - Hypertension [Not Recovered/Not Resolved]
  - Dizziness [Unknown]
  - Headache [Recovered/Resolved]
  - Hypoaesthesia [Unknown]
  - Pain [Recovered/Resolved]
  - Pyrexia [Unknown]
  - Asthenia [Recovered/Resolved]
  - Pain in extremity [Unknown]

NARRATIVE: CASE EVENT DATE: 20240101
